FAERS Safety Report 7983138-1 (Version None)
Quarter: 2011Q4

REPORT INFORMATION
  Report Type: 
  Country: None (occurrence: None)
  Receive Date: 20111115
  Receipt Date: 20111017
  Transmission Date: 20120403
  Serious: No
  Sender: FDA-Public Use
  Company Number: 337600

PATIENT
  Age: 76 Year
  Sex: Male

DRUGS (1)
  1. VICTOZA [Suspect]
     Indication: TYPE 2 DIABETES MELLITUS
     Dosage: 1.2 MG, QD, SUBCUTANEOUS
     Route: 058
     Dates: start: 20110926

REACTIONS (6)
  - HEART RATE INCREASED [None]
  - ABDOMINAL PAIN UPPER [None]
  - DIZZINESS [None]
  - PHOTOPSIA [None]
  - DIARRHOEA [None]
  - NAUSEA [None]
